FAERS Safety Report 16467506 (Version 1)
Quarter: 2019Q2

REPORT INFORMATION
  Report Type: Spontaneous
  Country: DE (occurrence: DE)
  Receive Date: 20190624
  Receipt Date: 20190624
  Transmission Date: 20190711
  Serious: Yes (Hospitalization, Other)
  Sender: FDA-Public Use
  Company Number: DE-BRISTOL-MYERS SQUIBB COMPANY-BMS-2019-058956

PATIENT
  Age: 71 Year
  Sex: Male

DRUGS (2)
  1. NIVOLUMAB [Suspect]
     Active Substance: NIVOLUMAB
     Indication: CLEAR CELL RENAL CELL CARCINOMA
     Dosage: UNAVAILABLE
     Route: 065
  2. IPILIMUMAB [Suspect]
     Active Substance: IPILIMUMAB
     Indication: CLEAR CELL RENAL CELL CARCINOMA
     Dosage: UNK
     Route: 065

REACTIONS (14)
  - Dyspnoea [Unknown]
  - Syncope [Unknown]
  - Diarrhoea [Unknown]
  - Pneumonitis [Unknown]
  - Rash pruritic [Unknown]
  - C-reactive protein increased [Unknown]
  - Hypophysitis [Unknown]
  - General physical health deterioration [Recovering/Resolving]
  - Tachycardia [Unknown]
  - Asthenia [Unknown]
  - Pyrexia [Unknown]
  - Retrograde amnesia [Unknown]
  - Vomiting [Unknown]
  - Pain [Unknown]
